FAERS Safety Report 5058163-3 (Version None)
Quarter: 2006Q3

REPORT INFORMATION
  Report Type: 
  Country: None (occurrence: None)
  Receive Date: 20060721
  Receipt Date: 20060227
  Transmission Date: 20061208
  Serious: Yes (Hospitalization, Other)
  Sender: FDA-Public Use
  Company Number: 2006UW03457

PATIENT
  Age: 56 Year
  Sex: Female
  Weight: 121.4 kg

DRUGS (3)
  1. CRESTOR [Suspect]
     Indication: HYPERLIPIDAEMIA
     Route: 048
     Dates: start: 20060112, end: 20060120
  2. ZOCOR [Concomitant]
     Indication: HYPERLIPIDAEMIA
     Route: 048
     Dates: end: 20060106
  3. SUDAFED 12 HOUR [Concomitant]
     Indication: NASAL CONGESTION
     Dates: start: 20060118

REACTIONS (9)
  - ANXIETY [None]
  - BRAIN SCAN ABNORMAL [None]
  - CALCINOSIS [None]
  - DYSGEUSIA [None]
  - GLOBAL AMNESIA [None]
  - HEADACHE [None]
  - NAUSEA [None]
  - TEARFULNESS [None]
  - VOMITING [None]
